FAERS Safety Report 6370017-9 (Version None)
Quarter: 2009Q3

REPORT INFORMATION
  Report Type: 
  Country: None (occurrence: None)
  Receive Date: 20090923
  Receipt Date: 20071121
  Transmission Date: 20100115
  Serious: Yes (Other)
  Sender: FDA-Public Use
  Company Number: US-ASTRAZENECA-2006UW08300

PATIENT
  Age: 607 Month
  Sex: Male

DRUGS (13)
  1. SEROQUEL [Suspect]
     Indication: ANXIETY
     Route: 048
     Dates: start: 20040106
  2. SEROQUEL [Suspect]
     Indication: DEPRESSION
     Route: 048
     Dates: start: 20040106
  3. SEROQUEL [Suspect]
     Indication: BIPOLAR DISORDER
     Route: 048
     Dates: start: 20040106
  4. SEROQUEL [Suspect]
     Dosage: 100 MG, 200 MG, 300 MG
     Route: 048
     Dates: start: 20040101, end: 20060101
  5. SEROQUEL [Suspect]
     Dosage: 100 MG, 200 MG, 300 MG
     Route: 048
     Dates: start: 20040101, end: 20060101
  6. SEROQUEL [Suspect]
     Dosage: 100 MG, 200 MG, 300 MG
     Route: 048
     Dates: start: 20040101, end: 20060101
  7. REMERON [Concomitant]
     Dosage: 30MG-45 MG
     Route: 048
     Dates: start: 20020910
  8. WELLBUTRIN [Concomitant]
     Route: 048
     Dates: start: 20021004
  9. LEXAPRO [Concomitant]
     Dates: start: 20021213
  10. ABILIFY [Concomitant]
     Route: 048
     Dates: start: 20021213
  11. NEURONTIN [Concomitant]
     Route: 048
     Dates: start: 20040103
  12. AMITRIPTYLINE [Concomitant]
     Route: 048
     Dates: start: 20040103
  13. VIAGRA [Concomitant]
     Dosage: 50 MG-100 MG
     Route: 048
     Dates: start: 20040306

REACTIONS (2)
  - DIABETES MELLITUS [None]
  - DIABETIC COMA [None]
